FAERS Safety Report 13555230 (Version 2)
Quarter: 2017Q2

REPORT INFORMATION
  Report Type: Spontaneous
  Country: BR (occurrence: BR)
  Receive Date: 20170517
  Receipt Date: 20170526
  Transmission Date: 20170830
  Serious: Yes (Death, Other)
  Sender: FDA-Public Use
  Company Number: BR-PFIZER INC-2017216534

PATIENT
  Age: 37 Year
  Sex: Female
  Weight: 58.8 kg

DRUGS (22)
  1. DIMORF [Concomitant]
     Active Substance: MORPHINE SULFATE
     Dosage: 6 MG, (2MG ACM)
     Route: 042
     Dates: start: 20170310, end: 20170322
  2. NORIPURUM [Concomitant]
     Active Substance: IRON POLYMALTOSE
     Dosage: 100 MG, UNK
     Route: 048
     Dates: start: 20170309, end: 20170315
  3. DIGESAN /00576701/ [Concomitant]
     Dosage: 30 MG, UNK
     Route: 042
     Dates: start: 20170311, end: 20170325
  4. FENTANEST /00174601/ [Concomitant]
     Active Substance: FENTANYL CITRATE
     Dosage: 2500 MG, UNK
     Route: 042
     Dates: start: 20170311, end: 20170322
  5. NOREPINEPHRINE BITARTRATE. [Concomitant]
     Active Substance: NOREPINEPHRINE BITARTRATE
     Dosage: 16 MG, UNK
     Route: 042
     Dates: start: 20170310, end: 20170326
  6. LUFTAL /06269601/ [Concomitant]
     Dosage: 544 MG, UNK
     Route: 048
     Dates: start: 20170309, end: 20170326
  7. TEUTO [Concomitant]
     Dosage: 1000 MG, UNK
     Route: 042
     Dates: start: 20170312, end: 20170321
  8. ZYVOX [Suspect]
     Active Substance: LINEZOLID
     Dosage: 600 MG, EVERY 12 HOURS
     Route: 042
     Dates: start: 20170309, end: 20170321
  9. BAC-SULFITRIN [Concomitant]
     Dosage: 480+96MG (3 AMPOULES) EVERY 8 HOURS
     Route: 042
     Dates: start: 20170311, end: 20170321
  10. CLEXANE [Concomitant]
     Active Substance: ENOXAPARIN SODIUM
     Dosage: 40 MG, UNK
     Route: 058
     Dates: start: 20170309, end: 20170322
  11. LYRICA [Concomitant]
     Active Substance: PREGABALIN
     Dosage: 150 MG, UNK
     Route: 048
     Dates: start: 20170309, end: 20170326
  12. AMBISOME [Concomitant]
     Active Substance: AMPHOTERICIN B
     Dosage: 200 MG, UNK
     Route: 042
     Dates: start: 20170309, end: 20170321
  13. KLARICID /00984601/ [Concomitant]
     Active Substance: CLARITHROMYCIN
     Dosage: 1000 MG, UNK
     Route: 042
     Dates: start: 20170311, end: 20170321
  14. PANTOZOL [Concomitant]
     Active Substance: PANTOPRAZOLE SODIUM
     Dosage: 40 MG, UNK
     Route: 042
     Dates: start: 20170309, end: 20170326
  15. MERONEM [Concomitant]
     Active Substance: MEROPENEM
     Dosage: 6 G, UNK
     Route: 042
     Dates: start: 20170309, end: 20170321
  16. PLASIL /00041901/ [Concomitant]
     Active Substance: METOCLOPRAMIDE
     Dosage: 30 MG, UNK
     Route: 042
     Dates: start: 20170311, end: 20170316
  17. EUTHYROX [Concomitant]
     Active Substance: LEVOTHYROXINE SODIUM
     Dosage: 75 UG, UNK
     Route: 048
     Dates: start: 20170309, end: 20170326
  18. LACTULONA [Concomitant]
     Dosage: 3 G, UNK
     Route: 048
     Dates: start: 20170309, end: 20170326
  19. NOVALGINA [Concomitant]
     Active Substance: METAMIZOLE SODIUM
     Dosage: 8 G, UNK
     Route: 042
     Dates: start: 20170309, end: 20170326
  20. PRECEDEX [Concomitant]
     Active Substance: DEXMEDETOMIDINE HYDROCHLORIDE
     Dosage: 400 UG, UNK
     Route: 042
     Dates: start: 20170310, end: 20170314
  21. GUTTALAX [Concomitant]
     Dosage: 12 DROPS EVERY 8 HOURS
     Route: 048
     Dates: start: 20170310, end: 20170326
  22. LASIX [Concomitant]
     Active Substance: FUROSEMIDE
     Dosage: 40 MG, UNK
     Route: 042
     Dates: start: 20170311, end: 20170325

REACTIONS (2)
  - Thrombocytopenia [Unknown]
  - Death [Fatal]

NARRATIVE: CASE EVENT DATE: 20170313
